FAERS Safety Report 15168233 (Version 2)
Quarter: 2018Q3

REPORT INFORMATION
  Report Type: Spontaneous
  Country: US (occurrence: US)
  Receive Date: 20180719
  Receipt Date: 20180806
  Transmission Date: 20181010
  Serious: Yes (Other)
  Sender: FDA-Public Use
  Company Number: US-GREER LABORATORIES, INC.-2052432

PATIENT
  Age: 27 Year
  Sex: Female

DRUGS (6)
  1. POLLENS ? WEEDS, DOCK/SORREL MIX [Suspect]
     Active Substance: RUMEX ACETOSELLA POLLEN\RUMEX CRISPUS POLLEN
     Route: 003
  2. LAMBS QUARTERS POLLEN [Suspect]
     Active Substance: CHENOPODIUM ALBUM POLLEN
     Route: 003
  3. ENGLISH PLANTAIN POLLEN [Suspect]
     Active Substance: PLANTAGO LANCEOLATA POLLEN
     Route: 003
  4. ORCHARD GRASS, STANDARDIZED [Suspect]
     Active Substance: DACTYLIS GLOMERATA POLLEN
     Route: 003
  5. POLLENS ? TREES, COTTONWOOD, EASTERN, POPULUS DELTOIDES [Suspect]
     Active Substance: POPULUS DELTOIDES POLLEN
     Route: 003
  6. ROUGH REDROOT PIGWEED POLLEN [Suspect]
     Active Substance: AMARANTHUS RETROFLEXUS POLLEN
     Route: 003

REACTIONS (3)
  - Throat tightness [Recovered/Resolved]
  - Rhinorrhoea [Recovered/Resolved]
  - Eye pruritus [Recovered/Resolved]

NARRATIVE: CASE EVENT DATE: 20180625
